FAERS Safety Report 6739243-0 (Version None)
Quarter: 2010Q2

REPORT INFORMATION
  Report Type: 
  Country: None (occurrence: None)
  Receive Date: 20100525
  Receipt Date: 20100519
  Transmission Date: 20101027
  Serious: Yes (Hospitalization)
  Sender: FDA-Public Use
  Company Number: FR-WYE-G05740810

PATIENT
  Sex: Male

DRUGS (3)
  1. ADVIL LIQUI-GELS [Suspect]
     Indication: PELVIC PAIN
     Dosage: UNKNOWN
     Route: 048
     Dates: start: 20100221, end: 20100305
  2. CORTANCYL [Suspect]
     Indication: PROSTATE CANCER
     Route: 048
     Dates: start: 20091212, end: 20100303
  3. SUNITINIB MALATE [Suspect]
     Indication: PROSTATE CANCER
     Route: 048
     Dates: start: 20091212, end: 20100303

REACTIONS (1)
  - RENAL FAILURE ACUTE [None]
